FAERS Safety Report 20340360 (Version 1)
Quarter: 2022Q1

REPORT INFORMATION
  Report Type: Spontaneous
  Country: US (occurrence: US)
  Receive Date: 20220117
  Receipt Date: 20220117
  Transmission Date: 20220423
  Serious: No
  Sender: FDA-Public Use
  Company Number: US-GW PHARMA-202201USGW00134

PATIENT

DRUGS (1)
  1. EPIDIOLEX [Suspect]
     Active Substance: CANNABIDIOL
     Indication: Lennox-Gastaut syndrome
     Dosage: 25.94 MG/KG/DAY, 800 MILLIGRAM, BID
     Route: 048
     Dates: start: 202107

REACTIONS (2)
  - Weight increased [Unknown]
  - Prescribed overdose [Unknown]
